FAERS Safety Report 19801077 (Version 1)
Quarter: 2021Q3

REPORT INFORMATION
  Report Type: Report from Study
  Country: IT (occurrence: IT)
  Receive Date: 20210908
  Receipt Date: 20210908
  Transmission Date: 20211014
  Serious: Yes (Other)
  Sender: FDA-Public Use
  Company Number: IT-CELLTRION INC.-2021IT011887

PATIENT

DRUGS (3)
  1. ANHYDROUS DOCETAXEL [Suspect]
     Active Substance: DOCETAXEL ANHYDROUS
     Indication: BREAST CANCER
     Dosage: 110 MG EVERY 1 CYCLE
     Route: 042
     Dates: start: 20210427, end: 20210427
  2. TRASTUZUMAB. [Suspect]
     Active Substance: TRASTUZUMAB
     Indication: BREAST CANCER
     Dosage: 480 MG EVERY 1 CYCLE
     Route: 042
     Dates: start: 20210427, end: 20210427
  3. CARBOPLATIN. [Suspect]
     Active Substance: CARBOPLATIN
     Indication: BREAST CANCER
     Dosage: 350 MG EVERY 1 CYCLE
     Route: 042
     Dates: start: 20210427, end: 20210427

REACTIONS (5)
  - Hypokalaemia [Recovering/Resolving]
  - Diarrhoea [Recovering/Resolving]
  - Hypocalcaemia [Recovering/Resolving]
  - Blood creatinine increased [Recovering/Resolving]
  - Electrolyte imbalance [Recovering/Resolving]

NARRATIVE: CASE EVENT DATE: 20210507
